FAERS Safety Report 18647156 (Version 1)
Quarter: 2020Q4

REPORT INFORMATION
  Report Type: Spontaneous
  Country: CA (occurrence: CA)
  Receive Date: 20201222
  Receipt Date: 20201222
  Transmission Date: 20210114
  Serious: Yes (Death, Hospitalization)
  Sender: FDA-Public Use
  Company Number: CA-ALVOGEN-2020-ALVOGEN-115573

PATIENT
  Age: 28 Year
  Sex: Male

DRUGS (9)
  1. LORAZEPAM. [Suspect]
     Active Substance: LORAZEPAM
     Indication: SCHIZOAFFECTIVE DISORDER
  2. OLANZAPINE. [Concomitant]
     Active Substance: OLANZAPINE
     Indication: SCHIZOAFFECTIVE DISORDER
  3. QUETIAPINE. [Suspect]
     Active Substance: QUETIAPINE
     Indication: SCHIZOAFFECTIVE DISORDER
     Route: 048
  4. DIMENHYDRINATE. [Suspect]
     Active Substance: DIMENHYDRINATE
     Indication: DRUG WITHDRAWAL SYNDROME
  5. ACTBUPRENORPHINE/NALOXONE [Suspect]
     Active Substance: BUPRENORPHINE\NALOXONE
     Indication: DRUG WITHDRAWAL SYNDROME
  6. CLONIDINE. [Suspect]
     Active Substance: CLONIDINE
     Indication: DRUG WITHDRAWAL SYNDROME
  7. HEROIN [Suspect]
     Active Substance: DIAMORPHINE
     Indication: DRUG WITHDRAWAL SYNDROME
     Route: 042
  8. TRAZODONE [Suspect]
     Active Substance: TRAZODONE HYDROCHLORIDE
     Indication: SCHIZOAFFECTIVE DISORDER
  9. METAMFETAMINE HYDROCHLORIDE [Suspect]
     Active Substance: METHAMPHETAMINE HYDROCHLORIDE
     Indication: SCHIZOAFFECTIVE DISORDER
     Dosage: 0.1 G

REACTIONS (3)
  - Loss of consciousness [Fatal]
  - Overdose [Fatal]
  - Brain injury [Fatal]
